FAERS Safety Report 7267282-2 (Version None)
Quarter: 2011Q1

REPORT INFORMATION
  Report Type: 
  Country: None (occurrence: None)
  Receive Date: 20110201
  Receipt Date: 20110113
  Transmission Date: 20110831
  Serious: Yes (Other)
  Sender: FDA-Public Use
  Company Number: CH-PFIZER INC-CH-WYE-H12592909

PATIENT
  Age: 34 Year
  Sex: Female

DRUGS (10)
  1. SOLU-MEDROL [Concomitant]
     Indication: NAUSEA
     Route: 065
  2. ELEVIT [Concomitant]
     Dosage: 1 DF, 1X/DAY
     Route: 065
     Dates: start: 20080101, end: 20090101
  3. ONDANSERTRON HCL [Suspect]
     Indication: VOMITING
  4. ZURCAL [Suspect]
     Indication: PROPHYLAXIS
     Dosage: 20 MG, 1X/DAY
     Route: 048
     Dates: start: 20090101, end: 20090101
  5. FERRO SANOL [Concomitant]
     Dosage: 1 DF, 1X/DAY
     Route: 065
  6. EPIRUBICIN [Suspect]
     Indication: BREAST CANCER
     Dosage: 100 MG/M2, WEEKLY
     Route: 065
     Dates: start: 20090106, end: 20090217
  7. CYCLOPHOSPHAMIDE [Suspect]
     Indication: BREAST CANCER
     Dosage: 500 MG/M2, WEEKLY
     Route: 065
     Dates: start: 20090106, end: 20090217
  8. ONDANSERTRON HCL [Suspect]
     Indication: NAUSEA
     Dosage: 8 MG, CYCLIC
     Route: 065
     Dates: start: 20090106, end: 20090101
  9. FLUOROURACIL [Suspect]
     Indication: BREAST CANCER
     Dosage: 500 MG/M2, WEEKLY
     Route: 065
     Dates: start: 20090106, end: 20090217
  10. SOLU-MEDROL [Concomitant]
     Indication: VOMITING

REACTIONS (2)
  - DRUG EXPOSURE DURING PREGNANCY [None]
  - CAESAREAN SECTION [None]
